FAERS Safety Report 10398845 (Version 1)
Quarter: 2014Q1

REPORT INFORMATION
  Report Type: Spontaneous
  Country: US (occurrence: None)
  Receive Date: 20130805
  Receipt Date: 20130805
  Transmission Date: 20141002
  Serious: No
  Sender: FDA-Public Use
  Company Number: 2013MA000345

PATIENT
  Sex: Male

DRUGS (1)
  1. KADIAN (MORPHINE SULFATE EXTENDED-RELEASE) CAPSULES 50MG (AELLC) [Suspect]
     Indication: PAIN
     Route: 048

REACTIONS (1)
  - Medication residue present [None]
